FAERS Safety Report 8409463-8 (Version None)
Quarter: 2012Q2

REPORT INFORMATION
  Report Type: 
  Country: None (occurrence: None)
  Receive Date: 20120605
  Receipt Date: 20120530
  Transmission Date: 20120825
  Serious: Yes (Death, Hospitalization)
  Sender: FDA-Public Use
  Company Number: US-AMGEN-USASP2012034077

PATIENT
  Sex: Female

DRUGS (1)
  1. ENBREL [Suspect]
     Indication: PSORIATIC ARTHROPATHY
     Dosage: 25 MG, QWK
     Route: 064
     Dates: start: 20000101, end: 20110401

REACTIONS (5)
  - BLOOD POTASSIUM INCREASED [None]
  - DEATH [None]
  - HYPERTENSION NEONATAL [None]
  - THROMBOSIS [None]
  - LETHARGY [None]
